FAERS Safety Report 5487681-9 (Version None)
Quarter: 2007Q4

REPORT INFORMATION
  Report Type: 
  Country: None (occurrence: None)
  Receive Date: 20071015
  Receipt Date: 20071015
  Transmission Date: 20080405
  Serious: Yes (Other)
  Sender: FDA-Public Use
  Company Number: None

PATIENT
  Sex: Female

DRUGS (1)
  1. URSODIOL [Suspect]
     Dosage: 300 MG  TWICE A DAY   PO
     Route: 048
     Dates: start: 20070917, end: 20071012

REACTIONS (1)
  - PHARMACEUTICAL PRODUCT COMPLAINT [None]
